FAERS Safety Report 4483941-9 (Version None)
Quarter: 2004Q4

REPORT INFORMATION
  Report Type: 
  Country: None (occurrence: None)
  Receive Date: 20041022
  Receipt Date: 20041022
  Transmission Date: 20050328
  Serious: Yes (Hospitalization)
  Sender: FDA-Public Use
  Company Number: None

PATIENT
  Age: 84 Year
  Sex: Male
  Weight: 91 kg

DRUGS (6)
  1. AREDIA [Suspect]
     Indication: HYPERCALCAEMIA OF MALIGNANCY
     Dosage: 90 MG X1 IV
     Route: 042
     Dates: start: 20041005, end: 20041005
  2. GLIPIZIDE [Concomitant]
  3. METFORMIN HCL [Concomitant]
  4. DIOVAN [Concomitant]
  5. CASODEX [Concomitant]
  6. SEPTRA [Concomitant]

REACTIONS (3)
  - EYE PAIN [None]
  - EYE SWELLING [None]
  - PAROPHTHALMIA [None]
